FAERS Safety Report 21698210 (Version 1)
Quarter: 2022Q4

REPORT INFORMATION
  Report Type: Spontaneous
  Country: US (occurrence: US)
  Receive Date: 20221208
  Receipt Date: 20221208
  Transmission Date: 20230113
  Serious: Yes (Hospitalization, Other)
  Sender: FDA-Public Use
  Company Number: US-SUN PHARMACEUTICAL INDUSTRIES LTD-2022R1-367370

PATIENT
  Sex: Female

DRUGS (2)
  1. PREDNISONE [Suspect]
     Active Substance: PREDNISONE
     Indication: Cytomegalovirus infection
     Dosage: 60 MILLIGRAM, DAILY
     Route: 065
  2. AZATHIOPRINE [Suspect]
     Active Substance: AZATHIOPRINE
     Indication: Cytomegalovirus infection
     Dosage: UNK
     Route: 065

REACTIONS (3)
  - Bacteraemia [Unknown]
  - Abdominal abscess [Unknown]
  - Urinary tract infection [Unknown]
